FAERS Safety Report 6152159-6 (Version None)
Quarter: 2009Q2

REPORT INFORMATION
  Report Type: 
  Country: None (occurrence: None)
  Receive Date: 20090410
  Receipt Date: 20090403
  Transmission Date: 20091009
  Serious: Yes (Other)
  Sender: FDA-Public Use
  Company Number: US-ALLERGAN-0902729US

PATIENT
  Sex: Male
  Weight: 78.3 kg

DRUGS (7)
  1. BOTOX [Suspect]
     Indication: MUSCLE SPASTICITY
     Dosage: 200 UNITS, SINGLE
     Route: 030
     Dates: start: 20090224, end: 20090224
  2. ASPIRIN [Concomitant]
     Dosage: 325 MG, QD
     Route: 048
  3. BACLOFEN [Concomitant]
     Dosage: 10 MG, BID
     Route: 048
  4. CALCIUM + VITAMIN D [Concomitant]
     Dosage: 600 MG-200 IU, BID
     Route: 048
  5. FLECAINIDE ACETATE [Concomitant]
     Indication: ATRIAL FIBRILLATION
     Dosage: 150 MG, PRN, 30 MIN AFTER METOPROLOL FOR ATRIAL FIBRILLATION
     Route: 048
  6. METOPROLOL TARTRATE [Concomitant]
     Indication: ATRIAL FIBRILLATION
     Dosage: 25 MG, PRN, TAKE AT THE START OF ATRIAL FIBRILLATION
     Route: 048
  7. ZANAFLEX [Concomitant]
     Dosage: 2 MG, BID
     Route: 048

REACTIONS (1)
  - ATRIAL FIBRILLATION [None]
